FAERS Safety Report 6010177-2 (Version None)
Quarter: 2008Q4

REPORT INFORMATION
  Report Type: 
  Country: None (occurrence: None)
  Receive Date: 20081218
  Receipt Date: 20081211
  Transmission Date: 20090506
  Serious: Yes (Hospitalization)
  Sender: FDA-Public Use
  Company Number: JP-BAYER-200812914BYL

PATIENT
  Age: 57 Year
  Sex: Female
  Weight: 50 kg

DRUGS (4)
  1. NEXAVAR [Suspect]
     Indication: RENAL CELL CARCINOMA STAGE IV
     Dosage: TOTAL DAILY DOSE: 800 MG  UNIT DOSE: 200 MG
     Route: 048
     Dates: start: 20081115
  2. DIOVAN [Concomitant]
     Route: 048
     Dates: start: 20081110, end: 20081126
  3. RENIVACE [Concomitant]
     Route: 048
     Dates: start: 20081117, end: 20081126
  4. ADALAT CC [Concomitant]
     Route: 048
     Dates: start: 20081116, end: 20081126

REACTIONS (2)
  - ERYTHEMA [None]
  - TOXIC SKIN ERUPTION [None]
